FAERS Safety Report 8882520 (Version 1)
Quarter: 2012Q4

REPORT INFORMATION
  Report Type: Report from Study
  Country: CA (occurrence: CA)
  Receive Date: 20121105
  Receipt Date: 20121105
  Transmission Date: 20130627
  Serious: Yes (Other)
  Sender: FDA-Public Use
  Company Number: CA-JNJFOC-20121014975

PATIENT
  Sex: Male
  Weight: 75 kg

DRUGS (12)
  1. REMICADE [Suspect]
     Indication: CROHN^S DISEASE
     Route: 042
     Dates: start: 200806
  2. DILANTIN [Concomitant]
     Route: 065
  3. PANTOLOC [Concomitant]
     Route: 065
  4. DOMPERIDONE [Concomitant]
     Route: 065
  5. LOPERAMIDE [Concomitant]
     Route: 065
  6. IMURAN [Concomitant]
     Route: 065
  7. ACETYL SALICYLIC ACID [Concomitant]
     Route: 065
  8. SOTALOL [Concomitant]
     Route: 065
  9. ALL OTHER THERAPEUTICS [Concomitant]
     Route: 065
  10. VITAMIN B12 [Concomitant]
     Route: 065
  11. CALCIUM [Concomitant]
     Route: 065
  12. BISOPROLOL [Concomitant]
     Route: 065

REACTIONS (1)
  - Skin cancer [Not Recovered/Not Resolved]
